FAERS Safety Report 17739692 (Version 2)
Quarter: 2020Q4

REPORT INFORMATION
  Report Type: Spontaneous
  Country: GB (occurrence: GB)
  Receive Date: 20200504
  Receipt Date: 20201001
  Transmission Date: 20210113
  Serious: Yes (Other)
  Sender: FDA-Public Use
  Company Number: GB-DRREDDYS-GER/UKI/20/0122494

PATIENT
  Age: 32 Year
  Sex: Female

DRUGS (16)
  1. MOMETASONE [Suspect]
     Active Substance: MOMETASONE
     Indication: RHINITIS ALLERGIC
  2. RESLIZUMAB [Suspect]
     Active Substance: RESLIZUMAB
     Indication: ASTHMA
     Route: 065
  3. MOMETASONE [Suspect]
     Active Substance: MOMETASONE
     Indication: CHRONIC RHINOSINUSITIS WITH NASAL POLYPS
     Route: 045
  4. MEPOLIZUMAB [Suspect]
     Active Substance: MEPOLIZUMAB
     Indication: ASTHMA
     Route: 065
  5. OMEPRAZOLE. [Concomitant]
     Active Substance: OMEPRAZOLE
     Indication: GASTROOESOPHAGEAL REFLUX DISEASE
  6. PREDNISOLONE. [Suspect]
     Active Substance: PREDNISOLONE
     Dosage: 20 MILLIGRAM DAILY; DOSE AGAIN INCREASED
     Route: 048
  7. BUDESONIDE W/FORMOTEROL [Suspect]
     Active Substance: BUDESONIDE\FORMOTEROL
     Indication: ASTHMA
     Dosage: .5 DOSAGE FORMS DAILY; BUDESONIDE/FORMOTEROL 400 MICROG/12 MICROG, DRY POWDER INHALER, 1 DOSAGE FORM
     Route: 055
  8. PREDNISOLONE. [Suspect]
     Active Substance: PREDNISOLONE
     Dosage: 40 MILLIGRAM DAILY;
     Route: 048
  9. SALBUTAMOL [Concomitant]
     Active Substance: ALBUTEROL
     Indication: ASTHMA
     Route: 055
  10. PREDNISOLONE. [Suspect]
     Active Substance: PREDNISOLONE
     Indication: ASTHMA
     Route: 048
  11. TIOTROPIUM [Concomitant]
     Active Substance: TIOTROPIUM
     Indication: ASTHMA
     Route: 055
  12. MONTELUKAST [Suspect]
     Active Substance: MONTELUKAST SODIUM
     Indication: ASTHMA
     Route: 065
  13. PREDNISOLONE. [Suspect]
     Active Substance: PREDNISOLONE
     Dosage: 20 MILLIGRAM DAILY;
     Route: 048
  14. PREDNISOLONE. [Suspect]
     Active Substance: PREDNISOLONE
     Dosage: 5 MILLIGRAM DAILY;
     Route: 048
  15. PREDNISOLONE. [Suspect]
     Active Substance: PREDNISOLONE
     Dosage: REDUCED DOSE
     Route: 048
  16. FLUTICASONE/FORMOTEROL [Suspect]
     Active Substance: FLUTICASONE\FORMOTEROL
     Indication: ASTHMA
     Dosage: 4 DOSAGE FORMS DAILY; PRESSURISED METERED DOSE INHALER 2PUFFS TWICE DAILY THROUGH A SPACER; 1 DOSAGE
     Route: 055

REACTIONS (9)
  - Alopecia [Recovering/Resolving]
  - Urticaria [Unknown]
  - Myalgia [Unknown]
  - Paradoxical drug reaction [Unknown]
  - Oropharyngeal pain [Unknown]
  - Adrenal suppression [Unknown]
  - Asthma [Recovering/Resolving]
  - Headache [Unknown]
  - Drug ineffective [Unknown]
